FAERS Safety Report 8392560-3 (Version None)
Quarter: 2012Q2

REPORT INFORMATION
  Report Type: 
  Country: None (occurrence: None)
  Receive Date: 20120529
  Receipt Date: 20120510
  Transmission Date: 20120825
  Serious: Yes (Other)
  Sender: FDA-Public Use
  Company Number: JP-MERCK-1205USA00478

PATIENT
  Age: 76 Year
  Sex: Male
  Weight: 74 kg

DRUGS (8)
  1. KINEDAK [Concomitant]
     Route: 048
  2. ALDACTONE [Concomitant]
     Route: 048
  3. SINEMET [Suspect]
     Indication: PARKINSONISM
     Route: 048
     Dates: start: 20120416, end: 20120418
  4. VOGLIBOSE [Suspect]
     Indication: DIABETES MELLITUS
     Route: 048
     Dates: start: 20080901
  5. GLYBURIDE [Suspect]
     Indication: DIABETES MELLITUS
     Route: 048
     Dates: start: 20001112, end: 20120420
  6. DORNER [Concomitant]
     Route: 048
  7. TAMSULOSIN HCL [Concomitant]
     Route: 048
  8. LASIX [Concomitant]
     Route: 048

REACTIONS (3)
  - HYPOGLYCAEMIA [None]
  - ALTERED STATE OF CONSCIOUSNESS [None]
  - DRUG INTERACTION [None]
